FAERS Safety Report 9871220 (Version 2)
Quarter: 2014Q2

REPORT INFORMATION
  Report Type: Report from Study
  Country: US (occurrence: US)
  Receive Date: 20140205
  Receipt Date: 20140527
  Transmission Date: 20141212
  Serious: Yes (Other)
  Sender: FDA-Public Use
  Company Number: US-GLAXOSMITHKLINE-A1048064A

PATIENT
  Sex: Male

DRUGS (5)
  1. VENTOLIN HFA [Suspect]
     Indication: CHRONIC OBSTRUCTIVE PULMONARY DISEASE
     Route: 055
  2. ALBUTEROL [Suspect]
     Indication: CHRONIC OBSTRUCTIVE PULMONARY DISEASE
     Route: 065
  3. SIMVASTATIN [Concomitant]
  4. PLACEBO [Concomitant]
  5. ADVAIR [Concomitant]

REACTIONS (10)
  - Polyp [Not Recovered/Not Resolved]
  - Panic attack [Unknown]
  - Diarrhoea [Unknown]
  - Faecal incontinence [Unknown]
  - Pulmonary function test decreased [Unknown]
  - Wheezing [Unknown]
  - Chronic obstructive pulmonary disease [Unknown]
  - Lung neoplasm malignant [Unknown]
  - Pulmonary mass [Unknown]
  - Emphysema [Unknown]
